FAERS Safety Report 21742191 (Version 2)
Quarter: 2023Q1

REPORT INFORMATION
  Report Type: Spontaneous
  Country: CN (occurrence: CN)
  Receive Date: 20221216
  Receipt Date: 20230111
  Transmission Date: 20230417
  Serious: Yes (Other)
  Sender: FDA-Public Use
  Company Number: CN-BAYER-2022A171228

PATIENT
  Age: 65 Year
  Sex: Female
  Weight: 47 kg

DRUGS (1)
  1. STIVARGA [Suspect]
     Active Substance: REGORAFENIB
     Indication: Targeted cancer therapy
     Dosage: 80 MG, QD
     Route: 048
     Dates: start: 20221109, end: 20221115

REACTIONS (5)
  - Blood pressure increased [Recovered/Resolved]
  - Colon cancer metastatic [None]
  - Dizziness [None]
  - Headache [None]
  - Off label use [None]

NARRATIVE: CASE EVENT DATE: 20221109
